FAERS Safety Report 4885650-0 (Version None)
Quarter: 2005Q4

REPORT INFORMATION
  Report Type: 
  Country: None (occurrence: None)
  Receive Date: 20051220
  Receipt Date: 20050517
  Transmission Date: 20060501
  Serious: Yes (Hospitalization, Other)
  Sender: FDA-Public Use
  Company Number: HQWYE874623MAY05

PATIENT
  Sex: Male

DRUGS (3)
  1. EFFEXOR XR [Suspect]
     Dosage: 75 MG 1X PER 1 DAY, ORAL
     Route: 048
  2. DEPAKOTE [Concomitant]
  3. LIDOCAINE [Concomitant]

REACTIONS (2)
  - ARRHYTHMIA [None]
  - VENTRICULAR TACHYCARDIA [None]
